FAERS Safety Report 6220861-3 (Version None)
Quarter: 2009Q2

REPORT INFORMATION
  Report Type: 
  Country: None (occurrence: None)
  Receive Date: 20090610
  Receipt Date: 20090601
  Transmission Date: 20091009
  Serious: Yes (Other)
  Sender: FDA-Public Use
  Company Number: PHEH2009US04776

PATIENT
  Sex: Male
  Weight: 76.19 kg

DRUGS (6)
  1. TEKTURNA [Suspect]
     Indication: HYPERTENSION
     Dosage: 300 MG, QD
     Route: 048
     Dates: start: 20090101, end: 20090401
  2. CISPLATIN [Suspect]
     Indication: NEOPLASM MALIGNANT
     Dosage: ONCE WEEKLY FOR 2 CYCLES
     Route: 042
     Dates: start: 20080301, end: 20080401
  3. ETOPOPHOS PRESERVATIVE FREE [Suspect]
     Indication: NEOPLASM MALIGNANT
     Dosage: DAILY FOR ONE WEEK, 2 CYCLES
     Route: 042
     Dates: start: 20080301, end: 20080401
  4. RADIATION THERAPY [Suspect]
     Indication: NEOPLASM MALIGNANT
     Dosage: DAILY 5 TIMES A WEEK, 35 TREATMENTS
     Dates: start: 20080301, end: 20080401
  5. AMLODIPINE [Concomitant]
     Indication: HYPERTENSION
     Dosage: 10 MG, UNK
     Route: 048
     Dates: start: 20070101, end: 20090401
  6. LEXAPRO [Concomitant]
     Indication: DEPRESSION
     Dosage: 10 MG, UNK
     Route: 048
     Dates: start: 20070101

REACTIONS (6)
  - ANAEMIA [None]
  - ANXIETY [None]
  - BLOOD PRESSURE DECREASED [None]
  - LUNG CARCINOMA CELL TYPE UNSPECIFIED RECURRENT [None]
  - METASTASES TO CENTRAL NERVOUS SYSTEM [None]
  - VERTIGO POSITIONAL [None]
